FAERS Safety Report 8861599 (Version 1)
Quarter: 2012Q4

REPORT INFORMATION
  Report Type: Spontaneous
  Country: FR (occurrence: None)
  Receive Date: 20121024
  Receipt Date: 20121024
  Transmission Date: 20130627
  Serious: Yes (Death)
  Sender: FDA-Public Use
  Company Number: TPA2012A08070

PATIENT
  Age: 74 Year
  Sex: Male

DRUGS (10)
  1. ADENURIC [Suspect]
     Indication: GOUT
     Route: 048
     Dates: start: 20120716, end: 20120806
  2. COLCHICINE\OPIUM\TIEMONIUM METHYLSULFATE [Suspect]
     Indication: GOUT
     Route: 048
     Dates: start: 20120716, end: 20120806
  3. LASILIX (FUROSEMIDE) [Concomitant]
  4. EPLERENONE (EPLERENONE) [Concomitant]
  5. CARDENSIEL (BISOPROLOL FUMARATE) [Concomitant]
  6. CRESTOR (ROSUVASTATIN CALCIUM) [Concomitant]
  7. KARDEGIC (ACETYLSALICYLATE LYSINE) [Concomitant]
  8. LANTUS (INSULIN GLARGINE) [Concomitant]
  9. IMOVANE (ZOPICLONE) [Concomitant]
  10. NOVONORM (REPAGLINIDE) [Concomitant]

REACTIONS (12)
  - Renal failure acute [None]
  - Diarrhoea [None]
  - General physical health deterioration [None]
  - Transaminases increased [None]
  - Leukopenia [None]
  - Multi-organ failure [None]
  - Aspartate aminotransferase increased [None]
  - Sinus bradycardia [None]
  - Haemodynamic instability [None]
  - Ejection fraction decreased [None]
  - Neurological decompensation [None]
  - Coma [None]
